FAERS Safety Report 8274788-6 (Version None)
Quarter: 2012Q2

REPORT INFORMATION
  Report Type: 
  Country: None (occurrence: None)
  Receive Date: 20120411
  Receipt Date: 20120330
  Transmission Date: 20120825
  Serious: Yes (Other)
  Sender: FDA-Public Use
  Company Number: JP-ELI_LILLY_AND_COMPANY-JP201204000097

PATIENT

DRUGS (104)
  1. MEXILETINE HYDROCHLORIDE [Concomitant]
     Indication: PROPHYLAXIS
     Dosage: UNK
     Route: 064
     Dates: end: 20100608
  2. MEXILETINE HYDROCHLORIDE [Concomitant]
     Dosage: UNK
     Route: 064
     Dates: end: 20100608
  3. BERAPROST SODIUM [Concomitant]
     Dosage: UNK
     Route: 064
     Dates: start: 20100413, end: 20100506
  4. BERAPROST SODIUM [Concomitant]
     Dosage: UNK
     Route: 064
     Dates: start: 20100507, end: 20100630
  5. FOLIC ACID [Concomitant]
     Dosage: UNK
     Route: 064
     Dates: end: 20100630
  6. HIRUDOID [Concomitant]
     Indication: PROPHYLAXIS
     Dosage: UNK UNK, OTHER
     Route: 064
     Dates: start: 20100420, end: 20100630
  7. LASIX [Concomitant]
     Dosage: UNK
     Route: 063
     Dates: start: 20100701, end: 20100701
  8. FAMOTIDINE [Concomitant]
     Indication: PROPHYLAXIS
     Dosage: UNK
     Route: 063
     Dates: start: 20100702
  9. FAMOTIDINE [Concomitant]
     Dosage: UNK
     Route: 063
     Dates: start: 20100702
  10. OXYTOCIN [Concomitant]
     Dosage: UNK
     Route: 064
     Dates: start: 20100630, end: 20100630
  11. POTASSIUM CHLORIDE [Concomitant]
     Dosage: UNK
     Route: 064
     Dates: start: 20100630, end: 20100630
  12. POTASSIUM CHLORIDE [Concomitant]
     Dosage: UNK
     Route: 063
     Dates: start: 20100702, end: 20100702
  13. AMPICILLIN [Concomitant]
     Dosage: UNK
     Route: 063
     Dates: start: 20100701, end: 20100704
  14. AMPICILLIN [Concomitant]
     Dosage: UNK
     Route: 063
     Dates: start: 20100701, end: 20100704
  15. OMEPRAZOLE [Concomitant]
     Indication: PROPHYLAXIS
     Dosage: UNK
     Route: 064
     Dates: start: 20100630, end: 20100630
  16. GENTAMICIN SULFATE [Concomitant]
     Dosage: UNK
     Route: 063
     Dates: start: 20100701, end: 20100704
  17. ADCIRCA [Suspect]
     Dosage: 10 MG, QD
     Route: 063
     Dates: start: 20100701, end: 20100711
  18. MEXILETINE HYDROCHLORIDE [Concomitant]
     Dosage: UNK
     Route: 064
     Dates: start: 20100608, end: 20100630
  19. BUFFERIN A [Concomitant]
     Dosage: UNK
     Route: 063
     Dates: start: 20100705
  20. FERROUS CITRATE [Concomitant]
     Dosage: UNK
     Route: 064
     Dates: end: 20100630
  21. SLOW-K [Concomitant]
     Dosage: UNK
     Route: 063
     Dates: start: 20100630
  22. SLOW-K [Concomitant]
     Dosage: UNK
     Route: 063
     Dates: start: 20100630
  23. LASIX [Concomitant]
     Indication: PULMONARY ARTERIAL HYPERTENSION
     Dosage: UNK
     Route: 064
     Dates: start: 20100630, end: 20100630
  24. LASIX [Concomitant]
     Dosage: UNK
     Route: 063
     Dates: start: 20100702, end: 20100702
  25. OXYTOCIN [Concomitant]
     Dosage: UNK
     Route: 064
     Dates: start: 20100630, end: 20100630
  26. CAPROCIN [Concomitant]
     Dosage: UNK
     Route: 064
     Dates: start: 20100506, end: 20100629
  27. MAGSENT [Concomitant]
     Indication: THREATENED LABOUR
     Dosage: UNK
     Route: 064
     Dates: start: 20100626, end: 20100629
  28. MAGSENT [Concomitant]
     Dosage: UNK
     Route: 064
     Dates: start: 20100626, end: 20100629
  29. RINDERON                           /00008501/ [Concomitant]
     Dosage: UNK
     Route: 064
     Dates: start: 20100628, end: 20100629
  30. HEPARIN [Concomitant]
     Indication: PULMONARY ARTERIAL HYPERTENSION
     Dosage: UNK
     Route: 063
     Dates: start: 20100701, end: 20100705
  31. GENTAMICIN SULFATE [Concomitant]
     Dosage: UNK
     Route: 064
     Dates: start: 20100630, end: 20100630
  32. BERAPROST SODIUM [Concomitant]
     Dosage: UNK
     Route: 063
     Dates: start: 20100630
  33. BUFFERIN A [Concomitant]
     Dosage: UNK
     Route: 063
     Dates: start: 20100705
  34. FERROUS CITRATE [Concomitant]
     Indication: PROPHYLAXIS
     Dosage: UNK
     Route: 064
     Dates: end: 20100630
  35. SPIRONOLACTONE [Concomitant]
     Dosage: UNK
     Route: 064
     Dates: end: 20100630
  36. LASIX [Concomitant]
     Dosage: UNK
     Route: 064
     Dates: start: 20100504, end: 20100630
  37. FLURBIPROFEN [Concomitant]
     Dosage: UNK
     Route: 063
     Dates: start: 20100701, end: 20100702
  38. ADCIRCA [Suspect]
     Indication: PULMONARY ARTERIAL HYPERTENSION
     Dosage: 20 MG, QD
     Route: 064
     Dates: start: 20100420, end: 20100425
  39. BERAPROST SODIUM [Concomitant]
     Indication: PULMONARY ARTERIAL HYPERTENSION
     Dosage: UNK
     Route: 064
     Dates: start: 20100413, end: 20100506
  40. BERAPROST SODIUM [Concomitant]
     Dosage: UNK
     Route: 063
     Dates: start: 20100630
  41. BUFFERIN A [Concomitant]
     Indication: PULMONARY ARTERIAL HYPERTENSION
     Dosage: UNK
     Route: 064
     Dates: end: 20100615
  42. FOLIC ACID [Concomitant]
     Indication: PROPHYLAXIS
     Dosage: UNK
     Route: 064
     Dates: end: 20100630
  43. FOLIC ACID [Concomitant]
     Dosage: UNK
     Route: 063
     Dates: start: 20100630
  44. FERROUS CITRATE [Concomitant]
     Dosage: UNK
     Route: 063
     Dates: start: 20100630
  45. FERROUS CITRATE [Concomitant]
     Dosage: UNK
     Route: 063
     Dates: start: 20100630
  46. PERSANTIN [Concomitant]
     Dosage: UNK
     Route: 064
     Dates: end: 20100608
  47. HIRUDOID [Concomitant]
     Dosage: UNK UNK, OTHER
     Route: 063
     Dates: start: 20100630
  48. LASIX [Concomitant]
     Dosage: UNK
     Route: 064
     Dates: start: 20100504, end: 20100630
  49. LASIX [Concomitant]
     Dosage: UNK
     Route: 063
     Dates: start: 20100701, end: 20100707
  50. LASIX [Concomitant]
     Dosage: UNK
     Route: 063
     Dates: start: 20100708
  51. LASIX [Concomitant]
     Dosage: UNK
     Route: 064
     Dates: start: 20100630, end: 20100630
  52. LOXONIN [Concomitant]
     Dosage: UNK
     Route: 063
     Dates: start: 20100703
  53. ROPIVACAINE HYDROCHLORIDE [Concomitant]
     Dosage: UNK
     Route: 064
     Dates: start: 20100630, end: 20100630
  54. ROPIVACAINE HYDROCHLORIDE [Concomitant]
     Dosage: UNK
     Route: 064
     Dates: start: 20100630, end: 20100630
  55. ROPIVACAINE HYDROCHLORIDE [Concomitant]
     Dosage: UNK
     Route: 063
     Dates: start: 20100702, end: 20100702
  56. ROPIVACAINE HYDROCHLORIDE [Concomitant]
     Dosage: UNK
     Route: 063
     Dates: start: 20100702, end: 20100702
  57. CAPROCIN [Concomitant]
     Indication: PULMONARY ARTERIAL HYPERTENSION
     Dosage: UNK
     Route: 064
     Dates: start: 20100506, end: 20100629
  58. NOR-ADRENALIN [Concomitant]
     Dosage: UNK
     Route: 064
     Dates: start: 20100630, end: 20100630
  59. MEXILETINE HYDROCHLORIDE [Concomitant]
     Dosage: UNK
     Route: 064
     Dates: start: 20100608, end: 20100630
  60. MEXILETINE HYDROCHLORIDE [Concomitant]
     Dosage: UNK
     Route: 063
     Dates: start: 20100630
  61. SLOW-K [Concomitant]
     Dosage: UNK
     Route: 064
     Dates: end: 20100630
  62. PERSANTIN [Concomitant]
     Indication: CARDIAC FAILURE
     Dosage: UNK
     Route: 064
     Dates: end: 20100608
  63. PERSANTIN [Concomitant]
     Dosage: UNK
     Route: 063
     Dates: start: 20100705
  64. SPIRONOLACTONE [Concomitant]
     Dosage: UNK
     Route: 063
     Dates: start: 20100702
  65. LASIX [Concomitant]
     Indication: CARDIAC FAILURE
     Dosage: UNK
     Route: 064
     Dates: start: 20100501, end: 20100503
  66. LASIX [Concomitant]
     Dosage: UNK
     Route: 063
     Dates: start: 20100701, end: 20100701
  67. OXYTOCIN [Concomitant]
     Dosage: UNK
     Route: 063
     Dates: start: 20100701, end: 20100701
  68. POTASSIUM CHLORIDE [Concomitant]
     Indication: HYPOKALAEMIA
     Dosage: UNK
     Route: 064
     Dates: start: 20100630, end: 20100630
  69. POTASSIUM CHLORIDE [Concomitant]
     Dosage: UNK
     Route: 063
     Dates: start: 20100702, end: 20100702
  70. ROPIVACAINE HYDROCHLORIDE [Concomitant]
     Dosage: UNK
     Route: 063
     Dates: start: 20100701, end: 20100701
  71. NOR-ADRENALIN [Concomitant]
     Dosage: UNK
     Route: 064
     Dates: start: 20100630, end: 20100630
  72. OMEPRAZOLE [Concomitant]
     Dosage: UNK
     Route: 064
     Dates: start: 20100630, end: 20100630
  73. PENTAZOCINE LACTATE [Concomitant]
     Dosage: UNK
     Route: 064
     Dates: start: 20100630, end: 20100630
  74. GENTAMICIN SULFATE [Concomitant]
     Dosage: UNK
     Route: 063
     Dates: start: 20100701, end: 20100704
  75. ADCIRCA [Suspect]
     Dosage: 10 MG, QD
     Route: 064
     Dates: start: 20100426, end: 20100629
  76. ADCIRCA [Suspect]
     Dosage: 10 MG, QD
     Route: 063
     Dates: start: 20100701, end: 20100711
  77. FOLIC ACID [Concomitant]
     Dosage: UNK
     Route: 063
     Dates: start: 20100630
  78. SPIRONOLACTONE [Concomitant]
     Dosage: UNK
     Route: 063
     Dates: start: 20100702
  79. HIRUDOID [Concomitant]
     Dosage: UNK UNK, OTHER
     Route: 064
     Dates: start: 20100420, end: 20100630
  80. LASIX [Concomitant]
     Dosage: UNK
     Route: 063
     Dates: start: 20100708
  81. LASIX [Concomitant]
     Dosage: UNK
     Route: 063
     Dates: start: 20100702, end: 20100702
  82. POTASSIUM CHLORIDE [Concomitant]
     Dosage: UNK
     Route: 063
     Dates: start: 20100701, end: 20100701
  83. POTASSIUM CHLORIDE [Concomitant]
     Dosage: UNK
     Route: 063
     Dates: start: 20100701, end: 20100701
  84. FLURBIPROFEN [Concomitant]
     Dosage: UNK
     Route: 063
     Dates: start: 20100701, end: 20100702
  85. RINDERON                           /00008501/ [Concomitant]
     Dosage: UNK
     Route: 064
     Dates: start: 20100628, end: 20100629
  86. PENTAZOCINE LACTATE [Concomitant]
     Dosage: UNK
     Route: 064
     Dates: start: 20100630, end: 20100630
  87. MEXILETINE HYDROCHLORIDE [Concomitant]
     Dosage: UNK
     Route: 063
     Dates: start: 20100630
  88. BERAPROST SODIUM [Concomitant]
     Dosage: UNK
     Route: 064
     Dates: start: 20100507, end: 20100630
  89. PERSANTIN [Concomitant]
     Dosage: UNK
     Route: 063
     Dates: start: 20100705
  90. SPIRONOLACTONE [Concomitant]
     Indication: CARDIAC FAILURE
     Dosage: UNK
     Route: 064
     Dates: end: 20100630
  91. LASIX [Concomitant]
     Dosage: UNK
     Route: 064
     Dates: start: 20100501, end: 20100503
  92. LOXONIN [Concomitant]
     Dosage: UNK
     Route: 063
     Dates: start: 20100703
  93. OXYTOCIN [Concomitant]
     Dosage: UNK
     Route: 063
     Dates: start: 20100701, end: 20100701
  94. ROPIVACAINE HYDROCHLORIDE [Concomitant]
     Dosage: UNK
     Route: 063
     Dates: start: 20100701, end: 20100701
  95. AMPICILLIN [Concomitant]
     Dosage: UNK
     Route: 064
     Dates: start: 20100629, end: 20100630
  96. AMPICILLIN [Concomitant]
     Dosage: UNK
     Route: 064
     Dates: start: 20100629, end: 20100630
  97. ADCIRCA [Suspect]
     Dosage: 20 MG, QD
     Route: 064
     Dates: start: 20100420, end: 20100425
  98. ADCIRCA [Suspect]
     Dosage: 10 MG, QD
     Route: 064
     Dates: start: 20100426, end: 20100629
  99. BUFFERIN A [Concomitant]
     Dosage: UNK
     Route: 064
     Dates: end: 20100615
  100. SLOW-K [Concomitant]
     Indication: HYPOKALAEMIA
     Dosage: UNK
     Route: 064
     Dates: end: 20100630
  101. HIRUDOID [Concomitant]
     Dosage: UNK UNK, OTHER
     Route: 063
     Dates: start: 20100630
  102. LASIX [Concomitant]
     Dosage: UNK
     Route: 063
     Dates: start: 20100701, end: 20100707
  103. HEPARIN [Concomitant]
     Dosage: UNK
     Route: 063
     Dates: start: 20100701, end: 20100705
  104. GENTAMICIN SULFATE [Concomitant]
     Dosage: UNK
     Route: 064
     Dates: start: 20100630, end: 20100630

REACTIONS (5)
  - LOW BIRTH WEIGHT BABY [None]
  - EXPOSURE DURING BREAST FEEDING [None]
  - CIRCULATORY FAILURE NEONATAL [None]
  - FOETAL EXPOSURE DURING PREGNANCY [None]
  - NEONATAL RESPIRATORY DISTRESS SYNDROME [None]
